FAERS Safety Report 16105448 (Version 1)
Quarter: 2019Q1

REPORT INFORMATION
  Report Type: Report from Study
  Country: US (occurrence: US)
  Receive Date: 20190322
  Receipt Date: 20190322
  Transmission Date: 20190418
  Serious: Yes (Other)
  Sender: FDA-Public Use
  Company Number: US-PFIZER INC-2019037959

PATIENT
  Age: 63 Year
  Sex: Female

DRUGS (2)
  1. IBRANCE [Suspect]
     Active Substance: PALBOCICLIB
     Indication: BREAST CANCER FEMALE
     Dosage: 125 MG, CYCLIC(21 DAYS ON THERAPY, 7 DAYS OFF)
     Route: 048
     Dates: start: 20190111
  2. IBRANCE [Suspect]
     Active Substance: PALBOCICLIB
     Dosage: 100 MG, CYCLIC (DAILY 21 DAYS ON THERAPY, 7 DAYS OFF )
     Route: 048
     Dates: start: 20190222

REACTIONS (6)
  - Fatigue [Unknown]
  - White blood cell count decreased [Unknown]
  - Bone marrow failure [Unknown]
  - Rash pruritic [Unknown]
  - Nausea [Unknown]
  - Diarrhoea [Unknown]

NARRATIVE: CASE EVENT DATE: 2019
